FAERS Safety Report 9373947 (Version 1)
Quarter: 2013Q2

REPORT INFORMATION
  Report Type: Spontaneous
  Country: US (occurrence: US)
  Receive Date: 20130628
  Receipt Date: 20130628
  Transmission Date: 20140414
  Serious: Yes (Death, Hospitalization)
  Sender: FDA-Public Use
  Company Number: US-SHIRE-ALL1-2013-04278

PATIENT
  Age: 59 Year
  Sex: Male

DRUGS (1)
  1. FOSRENOL [Suspect]
     Indication: DIALYSIS
     Dosage: 1000 MG, 1X/DAY:QD
     Route: 048
     Dates: start: 2006

REACTIONS (2)
  - Death [Fatal]
  - Hospitalisation [Unknown]
